FAERS Safety Report 6291804-1 (Version None)
Quarter: 2009Q3

REPORT INFORMATION
  Report Type: 
  Country: None (occurrence: None)
  Receive Date: 20090730
  Receipt Date: 20090724
  Transmission Date: 20100115
  Serious: Yes (Hospitalization)
  Sender: FDA-Public Use
  Company Number: BR-ASTRAZENECA-2009UW21153

PATIENT
  Age: 16 Year
  Sex: Male

DRUGS (1)
  1. BUDECORT [Suspect]
     Indication: RHINITIS
     Dosage: 32 MCG
     Route: 045
     Dates: start: 20060101

REACTIONS (1)
  - PNEUMONIA [None]
